FAERS Safety Report 5752885-4 (Version None)
Quarter: 2008Q2

REPORT INFORMATION
  Report Type: 
  Country: None (occurrence: None)
  Receive Date: 20080529
  Receipt Date: 20080501
  Transmission Date: 20081010
  Serious: No
  Sender: FDA-Public Use
  Company Number: US-BOEHRINGER INGELHEIM GMBH, GERMANY-2008-BP-06868BP

PATIENT
  Sex: Female

DRUGS (5)
  1. ZANTAC 150 [Suspect]
     Indication: DYSPEPSIA
     Route: 048
     Dates: start: 20080417
  2. ZYRTEC [Concomitant]
  3. XANAX [Concomitant]
  4. CYMBALTA [Concomitant]
  5. WELLBUTRIN [Concomitant]

REACTIONS (1)
  - DIARRHOEA [None]
